FAERS Safety Report 9817549 (Version 1)
Quarter: 2014Q1

REPORT INFORMATION
  Report Type: Spontaneous
  Country: GB (occurrence: GB)
  Receive Date: 20140115
  Receipt Date: 20140115
  Transmission Date: 20141002
  Serious: Yes (Other)
  Sender: FDA-Public Use
  Company Number: GB-ROCHE-1332810

PATIENT
  Age: 40 Year
  Sex: Male
  Weight: 74.4 kg

DRUGS (5)
  1. COPEGUS [Suspect]
     Indication: HEPATITIS C
     Route: 048
     Dates: start: 20131126, end: 20131226
  2. PEGASYS [Interacting]
     Indication: HEPATITIS C
     Route: 058
     Dates: start: 20131126, end: 20131226
  3. INCIVO [Suspect]
     Indication: HEPATITIS C
     Route: 048
     Dates: start: 20131126, end: 20131226
  4. METHADONE [Concomitant]
     Route: 048
  5. MIRTAZAPINE [Concomitant]
     Route: 048

REACTIONS (6)
  - Drug interaction [Unknown]
  - Feeling abnormal [Unknown]
  - Incontinence [Unknown]
  - Arthralgia [Unknown]
  - Hypoaesthesia [Unknown]
  - Convulsion [Recovered/Resolved with Sequelae]
